FAERS Safety Report 6675429 (Version 2)
Quarter: 2013Q2

REPORT INFORMATION
  Report Type: Spontaneous
  Country: CA (occurrence: CA)
  Receive Date: 20080623
  Receipt Date: 20130408
  Transmission Date: 20140414
  Serious: Yes (Death)
  Sender: FDA-Public Use
  Company Number: CA-ABBOTT-08P-026-0458287-00

PATIENT
  Age: 46 Year
  Sex: 0

DRUGS (7)
  1. KALETRA [Suspect]
     Indication: PROPHYLAXIS AGAINST HIV INFECTION
     Route: 048
  2. FENTANYL [Interacting]
     Indication: PRODUCT USED FOR UNKNOWN INDICATION
     Dosage: PATCH 100 MCG/H
     Route: 062
  3. VENLAFAXINE [Concomitant]
     Indication: PRODUCT USED FOR UNKNOWN INDICATION
     Dosage: NOT REPORTED
  4. AMITRIPTYLINE [Concomitant]
     Indication: PRODUCT USED FOR UNKNOWN INDICATION
     Dosage: NOT REPORTED
  5. BUPROPION [Concomitant]
     Indication: PRODUCT USED FOR UNKNOWN INDICATION
     Dosage: NOT REPORTED
  6. HORMONE REPLACEMENT THERAPY [Concomitant]
     Indication: PRODUCT USED FOR UNKNOWN INDICATION
     Dosage: NOT REPORTED
  7. COMBIVIR [Concomitant]
     Indication: PROPHYLAXIS AGAINST HIV INFECTION

REACTIONS (4)
  - Drug interaction [Fatal]
  - Toxicity to various agents [Fatal]
  - Somnolence [None]
  - Unresponsive to stimuli [None]
